FAERS Safety Report 17652990 (Version 1)
Quarter: 2020Q2

REPORT INFORMATION
  Report Type: Spontaneous
  Country: US (occurrence: US)
  Receive Date: 20200409
  Receipt Date: 20200409
  Transmission Date: 20200713
  Serious: No
  Sender: FDA-Public Use
  Company Number: US-PFIZER INC-2020146314

PATIENT
  Age: 54 Year
  Sex: Female

DRUGS (2)
  1. TYMLOS [Suspect]
     Active Substance: ABALOPARATIDE
     Indication: OSTEOPOROSIS POSTMENOPAUSAL
     Dosage: 80 UG, UNK
     Route: 058
     Dates: start: 20200218
  2. GABAPENTIN. [Suspect]
     Active Substance: GABAPENTIN
     Dosage: UNK

REACTIONS (6)
  - Vision blurred [Unknown]
  - Hypotension [Unknown]
  - Wrong technique in device usage process [Unknown]
  - Device issue [Unknown]
  - Extra dose administered [Unknown]
  - Balance disorder [Unknown]
